FAERS Safety Report 7382175 (Version 4)
Quarter: 2012Q4

REPORT INFORMATION
  Report Type: 
  Country: ES (occurrence: ES)
  Receive Date: 20100510
  Receipt Date: 20120910
  Transmission Date: 20130627
  Serious: Yes (Life-Threatening, Hospitalization)
  Sender: FDA-Public Use
  Company Number: ES-ROCHE-701457

PATIENT
  Age: 39 Year
  Sex: Female
  Weight: 65 kg

DRUGS (9)
  1. ROACTEMRA [Suspect]
     Indication: RHEUMATOID ARTHRITIS
     Dosage: FORM: INFUSION (DOSE: 08 MG/KG EVERY MONTH)
     Route: 042
  2. ROACTEMRA [Suspect]
     Route: 042
  3. ROACTEMRA [Suspect]
     Route: 042
  4. ROACTEMRA [Suspect]
     Route: 042
     Dates: start: 20100424, end: 20100505
  5. PREDNISONE [Concomitant]
     Indication: RHEUMATOID ARTHRITIS
     Route: 048
  6. DOLQUINE [Concomitant]
     Indication: RHEUMATOID ARTHRITIS
     Route: 048
  7. METHOTREXATE [Concomitant]
     Indication: RHEUMATOID ARTHRITIS
     Route: 058
  8. IBUPROFEN [Concomitant]
     Route: 048
  9. NIFEDIPINE [Concomitant]
     Route: 048

REACTIONS (4)
  - Cholecystitis acute [Recovering/Resolving]
  - Septic shock [Recovering/Resolving]
  - Neutropenia [Recovering/Resolving]
  - Pneumonia [Recovering/Resolving]
